FAERS Safety Report 6177059-7 (Version None)
Quarter: 2009Q2

REPORT INFORMATION
  Report Type: 
  Country: None (occurrence: None)
  Receive Date: 20090501
  Receipt Date: 20090428
  Transmission Date: 20091009
  Serious: Yes (Death)
  Sender: FDA-Public Use
  Company Number: US-GILEAD-2009-0021683

PATIENT
  Sex: Female

DRUGS (9)
  1. LETAIRIS [Suspect]
     Indication: PULMONARY ARTERIAL HYPERTENSION
     Dates: end: 20090421
  2. REVATIO [Concomitant]
  3. DEMADEX [Concomitant]
  4. TRENTAL [Concomitant]
  5. SPIRONOLACTONE [Concomitant]
  6. SIMVASTATIN [Concomitant]
  7. NEXIUM [Concomitant]
  8. AMITRIPTYLINE HCL [Concomitant]
  9. PROZAC [Concomitant]

REACTIONS (1)
  - DEATH [None]
